FAERS Safety Report 12409239 (Version 3)
Quarter: 2016Q3

REPORT INFORMATION
  Report Type: Spontaneous
  Country: US (occurrence: US)
  Receive Date: 20160526
  Receipt Date: 20160922
  Transmission Date: 20161109
  Serious: Yes (Hospitalization, Other)
  Sender: FDA-Public Use
  Company Number: US-ASTRAZENECA-2016SE53152

PATIENT
  Age: 24537 Day
  Sex: Male
  Weight: 89.8 kg

DRUGS (9)
  1. BRILINTA [Suspect]
     Active Substance: TICAGRELOR
     Indication: STENT PLACEMENT
     Route: 048
     Dates: start: 201604
  2. ASPIRIN. [Concomitant]
     Active Substance: ASPIRIN
     Indication: SUPPLEMENTATION THERAPY
     Route: 048
     Dates: start: 201605
  3. BRILINTA [Suspect]
     Active Substance: TICAGRELOR
     Indication: MYOCARDIAL INFARCTION
     Route: 048
     Dates: start: 201605
  4. MUCINEXOTC [Concomitant]
     Indication: NASOPHARYNGITIS
     Dosage: 1200MG, UNKNOWN
     Route: 048
     Dates: start: 201605
  5. MUCINEXOTC [Concomitant]
     Indication: PNEUMONIA
     Dosage: 1200MG, UNKNOWN
     Route: 048
     Dates: start: 201605
  6. BRILINTA [Suspect]
     Active Substance: TICAGRELOR
     Indication: MYOCARDIAL INFARCTION
     Route: 048
     Dates: start: 201604
  7. MUCINEXOTC [Concomitant]
     Indication: BRONCHITIS
     Dosage: 1200MG, UNKNOWN
     Route: 048
     Dates: start: 201605
  8. BRILINTA [Suspect]
     Active Substance: TICAGRELOR
     Indication: STENT PLACEMENT
     Route: 048
     Dates: start: 201605
  9. ALLEGRA [Concomitant]
     Active Substance: FEXOFENADINE HYDROCHLORIDE
     Indication: MULTIPLE ALLERGIES
     Dosage: 90.0MG UNKNOWN
     Route: 048
     Dates: start: 201605

REACTIONS (15)
  - Skull fracture [Unknown]
  - Bronchitis [Unknown]
  - Pneumonia [Unknown]
  - Cardiac discomfort [Unknown]
  - Rib fracture [Unknown]
  - Haemorrhagic diathesis [Unknown]
  - Hypertension [Unknown]
  - Fatigue [Unknown]
  - Wrong technique in product usage process [Unknown]
  - Asthenia [Unknown]
  - Nasopharyngitis [Unknown]
  - Syncope [Unknown]
  - Fall [Unknown]
  - Dizziness [Unknown]
  - Dehydration [Unknown]

NARRATIVE: CASE EVENT DATE: 20160913
